FAERS Safety Report 4720981-6 (Version None)
Quarter: 2005Q3

REPORT INFORMATION
  Report Type: 
  Country: None (occurrence: None)
  Receive Date: 20050720
  Receipt Date: 20050708
  Transmission Date: 20060218
  Serious: Yes (Hospitalization)
  Sender: FDA-Public Use
  Company Number: 2005099539

PATIENT
  Age: 49 Year
  Sex: Female

DRUGS (6)
  1. SOLU-MEDROL [Suspect]
     Indication: ILL-DEFINED DISORDER
     Dosage: INTRAVENOUS
     Route: 042
  2. IFOSFAMIDE [Concomitant]
  3. MOVICOL (MACROL, POTASSIUM CHLORIDE, SODIUM BICARBONATE, SODIUM CHLORI [Concomitant]
  4. MESNA [Concomitant]
  5. ONDANSETRON HYDROCHLORIDE [Concomitant]
  6. DOXORUBICIN (DOXORUBICIN) [Concomitant]

REACTIONS (5)
  - AGITATION [None]
  - ANXIETY [None]
  - FEELING ABNORMAL [None]
  - TREMOR [None]
  - VOMITING [None]
